FAERS Safety Report 20986261 (Version 1)
Quarter: 2022Q2

REPORT INFORMATION
  Report Type: Spontaneous
  Country: CN (occurrence: CN)
  Receive Date: 20220621
  Receipt Date: 20220621
  Transmission Date: 20220720
  Serious: Yes (Hospitalization)
  Sender: FDA-Public Use
  Company Number: CN-BRISTOL-MYERS SQUIBB COMPANY-2022-055712

PATIENT
  Age: 45 Year
  Sex: Male

DRUGS (3)
  1. EFAVIRENZ [Suspect]
     Active Substance: EFAVIRENZ
     Indication: Acquired immunodeficiency syndrome
     Route: 065
     Dates: end: 2022
  2. TENOFOVIR [Suspect]
     Active Substance: TENOFOVIR
     Indication: Acquired immunodeficiency syndrome
     Route: 048
  3. LAMIVUDINE [Suspect]
     Active Substance: LAMIVUDINE
     Indication: Acquired immunodeficiency syndrome
     Route: 065

REACTIONS (2)
  - Drug eruption [Unknown]
  - Hepatic function abnormal [Unknown]
